FAERS Safety Report 9203667 (Version 1)
Quarter: 2013Q2

REPORT INFORMATION
  Report Type: Spontaneous
  Country: US (occurrence: US)
  Receive Date: 20130402
  Receipt Date: 20130402
  Transmission Date: 20140414
  Serious: Yes (Hospitalization, Other)
  Sender: FDA-Public Use
  Company Number: PHEH2013US007331

PATIENT
  Age: 60 Year
  Sex: Female

DRUGS (9)
  1. TEKTURNA [Suspect]
     Dosage: UNK UKN, UNK
  2. BUSPIRONE [Concomitant]
     Dosage: UNK UKN, UNK
  3. CITALOPRAM [Concomitant]
     Dosage: UNK UKN, UNK
  4. CELEXA [Concomitant]
     Dosage: UNK UKN, UNK
  5. RANITIDINE [Concomitant]
     Dosage: UNK UKN, UNK
  6. IBUPROFEN [Concomitant]
     Dosage: UNK UKN, UNK
  7. ASPIRIN [Concomitant]
     Dosage: UNK UKN, UNK
  8. LAMICTAL [Concomitant]
     Dosage: UNK UKN, UNK
  9. ALPRAZOLAM [Concomitant]
     Dosage: UNK UKN, UNK

REACTIONS (4)
  - Lower limb fracture [Unknown]
  - Femur fracture [Unknown]
  - Infection [Unknown]
  - Hypotension [Unknown]
